FAERS Safety Report 5959883-6 (Version None)
Quarter: 2008Q4

REPORT INFORMATION
  Report Type: 
  Country: None (occurrence: None)
  Receive Date: 20081120
  Receipt Date: 20080929
  Transmission Date: 20090506
  Serious: Yes (Death, Other)
  Sender: FDA-Public Use
  Company Number: PHHO2008SE11683

PATIENT
  Sex: Male
  Weight: 115 kg

DRUGS (6)
  1. ICL670A ICL+ [Suspect]
     Indication: IRON OVERLOAD
     Dosage: 1500 MG DAILY
     Route: 048
     Dates: start: 20080513, end: 20080530
  2. ICL670A ICL+ [Suspect]
     Dosage: 1500 MG DAILY
     Route: 048
     Dates: start: 20080626
  3. ATENOLOL [Concomitant]
     Indication: ATRIAL FIBRILLATION
     Dosage: 25 MG, QD
     Dates: start: 20070101, end: 20080701
  4. FUROSEMIDE [Concomitant]
     Indication: CARDIAC FAILURE
     Dosage: 80 MG, BID
     Dates: start: 20070101
  5. DIGOXIN [Concomitant]
     Indication: CARDIAC FAILURE
     Dosage: 0.13 MG, QD
     Dates: start: 20080714
  6. KALEORID [Concomitant]
     Indication: HYPOKALAEMIA
     Dosage: 750 MG, QD
     Dates: start: 20080714

REACTIONS (5)
  - DYSPNOEA [None]
  - HEPATIC FAILURE [None]
  - METABOLIC ACIDOSIS [None]
  - MULTI-ORGAN FAILURE [None]
  - RENAL FAILURE [None]
